FAERS Safety Report 16492920 (Version 1)
Quarter: 2019Q2

REPORT INFORMATION
  Report Type: Spontaneous
  Country: SE (occurrence: SE)
  Receive Date: 20190628
  Receipt Date: 20190628
  Transmission Date: 20190711
  Serious: Yes (Other)
  Sender: FDA-Public Use
  Company Number: SE-ROCHE-2321449

PATIENT
  Sex: Female
  Weight: 72 kg

DRUGS (1)
  1. XELODA [Suspect]
     Active Substance: CAPECITABINE
     Indication: BREAST CANCER
     Dosage: DOSAGE: 2000 X 2
     Route: 048
     Dates: start: 20190318, end: 20190515

REACTIONS (2)
  - Maternal exposure before pregnancy [Unknown]
  - Abortion spontaneous [Unknown]
